FAERS Safety Report 12774780 (Version 2)
Quarter: 2016Q4

REPORT INFORMATION
  Report Type: Report from Study
  Country: FR (occurrence: FR)
  Receive Date: 20160923
  Receipt Date: 20161026
  Transmission Date: 20170207
  Serious: Yes (Hospitalization, Other)
  Sender: FDA-Public Use
  Company Number: FR-PFIZER INC-2016428599

PATIENT
  Age: 54 Year
  Sex: Male

DRUGS (2)
  1. SUTENT [Suspect]
     Active Substance: SUNITINIB MALATE
     Dosage: 50 MG, 4 WEEKS ON 2 WEEKS OFF
  2. SUTENT [Suspect]
     Active Substance: SUNITINIB MALATE
     Indication: METASTATIC RENAL CELL CARCINOMA
     Dosage: 50 MG, 4 WEEKS ON 2 WEEKS OFF

REACTIONS (5)
  - Renal failure [Recovered/Resolved]
  - Liver function test abnormal [Recovered/Resolved]
  - Nausea [Recovered/Resolved]
  - Vomiting [Recovered/Resolved]
  - Activities of daily living impaired [Recovered/Resolved]

NARRATIVE: CASE EVENT DATE: 20150615
